FAERS Safety Report 4502374-X (Version None)
Quarter: 2004Q4

REPORT INFORMATION
  Report Type: 
  Country: None (occurrence: None)
  Receive Date: 20041110
  Receipt Date: 20041029
  Transmission Date: 20050328
  Serious: Yes (Hospitalization, Other)
  Sender: FDA-Public Use
  Company Number: 2004086364

PATIENT
  Age: 58 Year

DRUGS (4)
  1. LIPITOR [Suspect]
     Indication: ILL-DEFINED DISORDER
     Dosage: 80 MG (40 MG, 2 IN 1 D), ORAL
     Route: 048
     Dates: end: 20041001
  2. CYCLOSPORINE [Concomitant]
  3. MYCOPHENOLATE MOFETIL (MYCOPHENOLATE MOFETIL) [Concomitant]
  4. IMMUNOGLOBULIN HUMAN NORMAL (IMUNOGLOBULIN HUMAN NORMAL) [Concomitant]

REACTIONS (2)
  - RENAL TRANSPLANT [None]
  - RHABDOMYOLYSIS [None]
